FAERS Safety Report 13067378 (Version 1)
Quarter: 2016Q4

REPORT INFORMATION
  Report Type: Report from Study
  Country: CA (occurrence: CA)
  Receive Date: 20161228
  Receipt Date: 20161228
  Transmission Date: 20170207
  Serious: Yes (Other)
  Sender: FDA-Public Use
  Company Number: CA-TEVA-723092ACC

PATIENT
  Sex: Male

DRUGS (9)
  1. COPAXONE [Suspect]
     Active Substance: GLATIRAMER ACETATE
     Indication: MULTIPLE SCLEROSIS
     Dosage: 20 MILLIGRAM/MILLILITERS DAILY;
     Route: 058
     Dates: start: 20150602
  2. TEVA-SIMVASTATIN [Concomitant]
     Active Substance: SIMVASTATIN
  3. TEVA-QUETIAPINE [Concomitant]
     Active Substance: QUETIAPINE
  4. ASPIRIN. [Concomitant]
     Active Substance: ASPIRIN
  5. TEVA-DULOXETINE [Concomitant]
  6. SDZ-TAMSULOSIN [Concomitant]
  7. TEVA-OXYBUTYN [Concomitant]
  8. VITAMIN D [Concomitant]
     Active Substance: CHOLECALCIFEROL
  9. VITAMIN B6 [Concomitant]
     Active Substance: PYRIDOXINE HYDROCHLORIDE

REACTIONS (1)
  - Latent tuberculosis [Not Recovered/Not Resolved]
